FAERS Safety Report 24658657 (Version 1)
Quarter: 2024Q4

REPORT INFORMATION
  Report Type: Spontaneous
  Country: US (occurrence: US)
  Receive Date: 20241125
  Receipt Date: 20241125
  Transmission Date: 20250115
  Serious: Yes (Hospitalization)
  Sender: CIPLA
  Company Number: US-CIPLA LTD.-2024US13494

PATIENT

DRUGS (3)
  1. ALBUTEROL [Suspect]
     Active Substance: ALBUTEROL
     Indication: Chronic obstructive pulmonary disease
     Dosage: UNK (REGULAR USER)
  2. ALBUTEROL [Suspect]
     Active Substance: ALBUTEROL
     Dosage: 2 PUFFS A DAY, IN THE MORNING, AND AS NEEDED IN THE EMERGENCY NOT MORE THAN 4 HOURS GO BY (PRN)
     Dates: start: 2024, end: 2024
  3. ALBUTEROL [Suspect]
     Active Substance: ALBUTEROL
     Dosage: UNK (NEW INHALER)
     Dates: start: 2024

REACTIONS (5)
  - Chronic obstructive pulmonary disease [Recovered/Resolved]
  - Drug dose omission by device [Unknown]
  - Product use complaint [Unknown]
  - Device delivery system issue [Unknown]
  - Device mechanical issue [Unknown]

NARRATIVE: CASE EVENT DATE: 20241001
